FAERS Safety Report 18197390 (Version 1)
Quarter: 2020Q3

REPORT INFORMATION
  Report Type: Spontaneous
  Country: US (occurrence: US)
  Receive Date: 20200825
  Receipt Date: 20200825
  Transmission Date: 20201103
  Serious: Yes (Hospitalization)
  Sender: FDA-Public Use
  Company Number: None

PATIENT
  Age: 43 Year
  Sex: Female

DRUGS (6)
  1. MORPHINE SUL [Concomitant]
     Active Substance: MORPHINE SULFATE
  2. FOLIC ACID. [Concomitant]
     Active Substance: FOLIC ACID
  3. ONDANSETRON [Concomitant]
     Active Substance: ONDANSETRON
  4. HYDROXYUREA. [Concomitant]
     Active Substance: HYDROXYUREA
  5. DEFERASIROX 360MG TAB (30) [Suspect]
     Active Substance: DEFERASIROX
     Indication: SICKLE CELL DISEASE
     Route: 048
     Dates: start: 20180608
  6. VITAMIN D [Concomitant]
     Active Substance: VITAMIN D NOS

REACTIONS (2)
  - Sickle cell anaemia [None]
  - Therapy interrupted [None]

NARRATIVE: CASE EVENT DATE: 20200816
